FAERS Safety Report 13133203 (Version 2)
Quarter: 2017Q1

REPORT INFORMATION
  Report Type: Spontaneous
  Country: GR (occurrence: GR)
  Receive Date: 20170120
  Receipt Date: 20170126
  Transmission Date: 20170428
  Serious: Yes (Disabling, Other)
  Sender: FDA-Public Use
  Company Number: PHHY2017GR006740

PATIENT
  Sex: Male

DRUGS (2)
  1. VELCADE [Suspect]
     Active Substance: BORTEZOMIB
     Indication: PLASMA CELL MYELOMA
     Dosage: UNK
     Route: 065
     Dates: start: 2008
  2. ZOMETA [Suspect]
     Active Substance: ZOLEDRONIC ACID
     Indication: PLASMA CELL MYELOMA
     Dosage: UNK
     Route: 065
     Dates: start: 2008

REACTIONS (3)
  - Osteonecrosis of jaw [Unknown]
  - Mastication disorder [Unknown]
  - Speech disorder [Unknown]
